FAERS Safety Report 15201043 (Version 1)
Quarter: 2018Q3

REPORT INFORMATION
  Report Type: Spontaneous
  Country: FR (occurrence: FR)
  Receive Date: 20180726
  Receipt Date: 20180726
  Transmission Date: 20181010
  Serious: Yes (Death, Other)
  Sender: FDA-Public Use
  Company Number: FR-TEVA-2018-FR-931093

PATIENT

DRUGS (29)
  1. HYDREA [Interacting]
     Active Substance: HYDROXYUREA
     Indication: ACUTE MYELOID LEUKAEMIA
     Dosage: 1000 MILLIGRAM DAILY;
     Route: 048
     Dates: start: 20171013, end: 20171021
  2. FASTURTEC [Concomitant]
     Active Substance: RASBURICASE
     Indication: PRODUCT USED FOR UNKNOWN INDICATION
     Dosage: 7.5 MG, ONCE
     Route: 042
     Dates: start: 20171014, end: 20171014
  3. ZYLORIC [Interacting]
     Active Substance: ALLOPURINOL
     Indication: TUMOUR LYSIS SYNDROME
     Dosage: 100 MILLIGRAM DAILY;
     Route: 048
     Dates: start: 20171029, end: 20171029
  4. ZYLORIC [Interacting]
     Active Substance: ALLOPURINOL
     Indication: TUMOUR LYSIS SYNDROME
     Dosage: 100 MILLIGRAM DAILY;
     Route: 048
     Dates: start: 20171027, end: 20171027
  5. MOVICOL [Concomitant]
     Active Substance: POLYETHYLENE GLYCOL 3350\POTASSIUM CHLORIDE\SODIUM BICARBONATE\SODIUM CHLORIDE
     Indication: PRODUCT USED FOR UNKNOWN INDICATION
     Dosage: 2 DF, QD
  6. ZYLORIC [Interacting]
     Active Substance: ALLOPURINOL
     Indication: TUMOUR LYSIS SYNDROME
     Dosage: 200 MILLIGRAM DAILY;
     Route: 048
     Dates: start: 20171015, end: 20171026
  7. TOPALGIC [TRAMADOL HYDROCHLORIDE] [Concomitant]
     Active Substance: TRAMADOL HYDROCHLORIDE
     Indication: PRODUCT USED FOR UNKNOWN INDICATION
     Dosage: 50 MG, PRN
     Dates: end: 20171025
  8. CEFTRIAXONE. [Interacting]
     Active Substance: CEFTRIAXONE
     Indication: URINARY TRACT INFECTION
     Dosage: 2 GRAM DAILY;
     Route: 042
     Dates: start: 20171016, end: 20171025
  9. CEFTRIAXONE. [Interacting]
     Active Substance: CEFTRIAXONE
     Indication: ACUTE MYELOID LEUKAEMIA
     Dosage: 100 MILLIGRAM DAILY;
     Route: 042
     Dates: start: 20171020, end: 20171027
  10. POLARAMINE [Interacting]
     Active Substance: DEXCHLORPHENIRAMINE MALEATE
     Indication: ACUTE MYELOID LEUKAEMIA
     Dosage: 5 MILLIGRAM DAILY;
     Route: 042
     Dates: start: 20171020, end: 20171027
  11. LASILIX [Interacting]
     Active Substance: FUROSEMIDE
     Indication: HYPERTENSION
     Dosage: 40 MILLIGRAM DAILY;
     Route: 048
     Dates: start: 20171019, end: 20171021
  12. CORTANCYL [Concomitant]
     Active Substance: PREDNISONE
     Indication: PRODUCT USED FOR UNKNOWN INDICATION
     Dosage: 40 MG, QD
  13. PHLOROGLUCINOL [Concomitant]
     Active Substance: PHLOROGLUCINOL
     Indication: PRODUCT USED FOR UNKNOWN INDICATION
     Dosage: 80 MG, PRN
  14. LASILIX                            /00032601/ [Interacting]
     Active Substance: FUROSEMIDE
     Indication: HYPERTENSION
     Dosage: 40 MILLIGRAM DAILY;
     Route: 048
     Dates: start: 20171019, end: 20171021
  15. HYDROCORTISONE. [Interacting]
     Active Substance: HYDROCORTISONE
     Indication: ACUTE MYELOID LEUKAEMIA
     Dosage: 100 MILLIGRAM DAILY;
     Route: 042
     Dates: start: 20171020, end: 20171027
  16. VFEND [Interacting]
     Active Substance: VORICONAZOLE
     Indication: BRONCHOPULMONARY ASPERGILLOSIS
     Dosage: 400 MILLIGRAM DAILY;
     Dates: start: 20171025, end: 20171025
  17. STILNOX [Concomitant]
     Active Substance: ZOLPIDEM TARTRATE
     Indication: PRODUCT USED FOR UNKNOWN INDICATION
     Dosage: 10 MG, PRN
  18. ICLUSIG [Interacting]
     Active Substance: PONATINIB
     Indication: ACUTE MYELOID LEUKAEMIA
     Dosage: 45 MILLIGRAM DAILY;
     Route: 048
     Dates: start: 20171017, end: 20171025
  19. ATARAX [Concomitant]
     Active Substance: HYDROXYZINE HYDROCHLORIDE
     Indication: PRODUCT USED FOR UNKNOWN INDICATION
     Dosage: 12.5 MILLIGRAM DAILY;
     Dates: end: 20171025
  20. TRIMEBUTINE [Interacting]
     Active Substance: TRIMEBUTINE
     Indication: GASTROINTESTINAL DISORDER
     Dosage: 200 MILLIGRAM DAILY;
     Route: 048
     Dates: start: 20171022, end: 20171025
  21. BISOPROLOL FUMARATE. [Suspect]
     Active Substance: BISOPROLOL FUMARATE
     Indication: TACHYCARDIA
     Dosage: 5 MILLIGRAM DAILY;
     Route: 048
     Dates: start: 20171015, end: 20171029
  22. LASILIX [Interacting]
     Active Substance: FUROSEMIDE
     Indication: HYPERTENSION
     Dosage: 20 MILLIGRAM DAILY;
     Route: 048
     Dates: start: 20171022, end: 20171025
  23. ZITHROMAX [Interacting]
     Active Substance: AZITHROMYCIN DIHYDRATE
     Indication: PRODUCT USED FOR UNKNOWN INDICATION
     Dosage: 250 MILLIGRAM DAILY;
     Route: 048
     Dates: start: 20171018, end: 20171025
  24. POTASSIUM CHLORIDE. [Concomitant]
     Active Substance: POTASSIUM CHLORIDE
  25. VFEND [Interacting]
     Active Substance: VORICONAZOLE
     Indication: BRONCHOPULMONARY ASPERGILLOSIS
     Dosage: 800 MILLIGRAM DAILY;
     Route: 042
     Dates: start: 20171019, end: 20171024
  26. ZITHROMAX [Interacting]
     Active Substance: AZITHROMYCIN DIHYDRATE
     Indication: PRODUCT USED FOR UNKNOWN INDICATION
     Dosage: 500 MG, ONCE
     Dates: start: 20171018, end: 20171018
  27. RENAGEL [SEVELAMER HYDROCHLORIDE] [Concomitant]
     Indication: PRODUCT USED FOR UNKNOWN INDICATION
     Dosage: 800 MG, UNK
  28. POLYETHYLENE GLYCOL 3350. [Concomitant]
     Active Substance: POLYETHYLENE GLYCOL 3350
  29. SODIUM BICARBONATE. [Concomitant]
     Active Substance: SODIUM BICARBONATE

REACTIONS (5)
  - Drug level increased [Fatal]
  - Hepatitis [Fatal]
  - Off label use [Fatal]
  - Hepatic failure [Fatal]
  - Drug interaction [Fatal]

NARRATIVE: CASE EVENT DATE: 20171017
